FAERS Safety Report 13054610 (Version 2)
Quarter: 2017Q1

REPORT INFORMATION
  Report Type: Spontaneous
  Country: US (occurrence: US)
  Receive Date: 20161222
  Receipt Date: 20170224
  Transmission Date: 20170428
  Serious: No
  Sender: FDA-Public Use
  Company Number: US-ASTRAZENECA-2016SF29736

PATIENT
  Age: 55 Year
  Sex: Female
  Weight: 49 kg

DRUGS (5)
  1. NORTRIPTYLINE [Concomitant]
     Active Substance: NORTRIPTYLINE
  2. NEURONTIN [Concomitant]
     Active Substance: GABAPENTIN
  3. PERCOCET [Concomitant]
     Active Substance: ACETAMINOPHEN\OXYCODONE HYDROCHLORIDE
     Dosage: FOUR TIMES A DAY, 5/325 MG
  4. MS CONTIN [Concomitant]
     Active Substance: MORPHINE SULFATE
  5. TUDORZA PRESSAIR [Suspect]
     Active Substance: ACLIDINIUM BROMIDE
     Dosage: 400 MCG, TWO PUFFS TWICE DAILY
     Route: 055
     Dates: start: 2015

REACTIONS (5)
  - Productive cough [Unknown]
  - Device malfunction [Unknown]
  - Emphysema [Unknown]
  - Intentional product misuse [Not Recovered/Not Resolved]
  - Circumstance or information capable of leading to medication error [Unknown]

NARRATIVE: CASE EVENT DATE: 2015
